FAERS Safety Report 7321798-9 (Version None)
Quarter: 2011Q1

REPORT INFORMATION
  Report Type: 
  Country: None (occurrence: None)
  Receive Date: 20110216
  Receipt Date: 20110201
  Transmission Date: 20110831
  Serious: Yes (Other)
  Sender: FDA-Public Use
  Company Number: AUR-APL-2011-00418

PATIENT
  Sex: Female

DRUGS (2)
  1. CITALOPRAM [Suspect]
     Indication: PRODUCT USED FOR UNKNOWN INDICATION
     Dosage: 10MG, DOSE REDUCED
  2. SAGE COMPLEX [Concomitant]

REACTIONS (8)
  - VOMITING [None]
  - HEADACHE [None]
  - TREMOR [None]
  - BALANCE DISORDER [None]
  - FATIGUE [None]
  - NAUSEA [None]
  - SOMNOLENCE [None]
  - DECREASED APPETITE [None]
